FAERS Safety Report 24362326 (Version 1)
Quarter: 2024Q3

REPORT INFORMATION
  Report Type: Spontaneous
  Country: CA (occurrence: CA)
  Receive Date: 20240925
  Receipt Date: 20240925
  Transmission Date: 20241017
  Serious: Yes (Other)
  Sender: FRESENIUS KABI
  Company Number: CA-FreseniusKabi-FK202414223

PATIENT
  Age: 65 Year
  Sex: Male
  Weight: 76 kg

DRUGS (2)
  1. OXALIPLATIN [Suspect]
     Active Substance: OXALIPLATIN
     Indication: Pancreatic carcinoma
     Dosage: FREQUENCY:  CYCLICAL?FORM OF ADMIN: SOLUTION INTRAVENOUS
     Route: 042
  2. OXALIPLATIN [Suspect]
     Active Substance: OXALIPLATIN
     Dosage: FREQUENCY: CYCLICAL?FORM OF ADMIN: SOLUTION INTRAVENOUS
     Route: 042

REACTIONS (2)
  - Erythema [Recovered/Resolved]
  - Rash [Recovered/Resolved]
